FAERS Safety Report 9153739 (Version 1)
Quarter: 2013Q1

REPORT INFORMATION
  Report Type: Spontaneous
  Country: HU (occurrence: HU)
  Receive Date: 20130311
  Receipt Date: 20130311
  Transmission Date: 20140127
  Serious: Yes (Death, Hospitalization, Other)
  Sender: FDA-Public Use
  Company Number: HU-JNJFOC-20130300880

PATIENT
  Age: 83 Year
  Sex: Male

DRUGS (4)
  1. XARELTO [Suspect]
     Indication: EMBOLISM VENOUS
     Route: 048
     Dates: start: 20130222, end: 20130223
  2. XARELTO [Suspect]
     Indication: DEEP VEIN THROMBOSIS
     Route: 048
     Dates: start: 20130222, end: 20130223
  3. PROTON PUMP INHIBITORS [Concomitant]
     Route: 065
  4. DICLOFENAC SODIUM [Concomitant]
     Route: 065

REACTIONS (2)
  - Pneumonia aspiration [Fatal]
  - Gastrointestinal haemorrhage [Not Recovered/Not Resolved]
